FAERS Safety Report 9324593 (Version 1)
Quarter: 2013Q2

REPORT INFORMATION
  Report Type: Spontaneous
  Country: DE (occurrence: DE)
  Receive Date: 20130603
  Receipt Date: 20130603
  Transmission Date: 20140414
  Serious: Yes (Other)
  Sender: FDA-Public Use
  Company Number: DE-ACTAVIS-2013-09234

PATIENT
  Age: 74 Year
  Sex: Male

DRUGS (5)
  1. DOCETAXEL (UNKNOWN) [Suspect]
     Indication: PROSTATE CANCER
     Dosage: 20 ML (48 MG DOCETAXEL IN SOLUTION)
     Route: 050
  2. NACL [Concomitant]
     Indication: PRODUCT USED FOR UNKNOWN INDICATION
     Dosage: 250 ML NACL SOLUTION
  3. BICALUTAMIDE [Concomitant]
     Indication: CANCER HORMONAL THERAPY
     Dosage: UNK
     Route: 065
  4. LEUPRORELIN ACETATE [Concomitant]
     Indication: CANCER HORMONAL THERAPY
     Dosage: UNK
     Route: 065
  5. BUSERELIN ACETATE [Concomitant]
     Indication: CANCER HORMONAL THERAPY
     Dosage: UNK
     Route: 065

REACTIONS (3)
  - Infusion site extravasation [Recovered/Resolved with Sequelae]
  - Infusion site necrosis [Recovered/Resolved with Sequelae]
  - Infusion site irritation [Recovered/Resolved with Sequelae]
